FAERS Safety Report 13093735 (Version 1)
Quarter: 2017Q1

REPORT INFORMATION
  Report Type: Spontaneous
  Country: US (occurrence: US)
  Receive Date: 20170105
  Receipt Date: 20170105
  Transmission Date: 20170428
  Serious: No
  Sender: FDA-Public Use
  Company Number: None

PATIENT
  Age: 57 Year
  Sex: Male

DRUGS (1)
  1. ZEPATIER [Suspect]
     Active Substance: ELBASVIR\GRAZOPREVIR
     Indication: PSORIASIS
     Dosage: 50/100MG QD ORAL
     Route: 048
     Dates: start: 20160831

REACTIONS (2)
  - Insomnia [None]
  - Abstains from alcohol [None]

NARRATIVE: CASE EVENT DATE: 20170103
